FAERS Safety Report 24254167 (Version 1)
Quarter: 2024Q3

REPORT INFORMATION
  Report Type: Spontaneous
  Country: CH (occurrence: CH)
  Receive Date: 20240827
  Receipt Date: 20240827
  Transmission Date: 20241017
  Serious: Yes (Other)
  Sender: SANOFI AVENTIS
  Company Number: None

PATIENT
  Age: 73 Year
  Sex: Male
  Weight: 90 kg

DRUGS (32)
  1. PLAVIX [Suspect]
     Active Substance: CLOPIDOGREL BISULFATE
     Dosage: 75 MG, QD (ENTERALLY VIA TUBE 1 IN THE MORNING)
     Dates: start: 20240524
  2. HEPARIN SODIUM [Suspect]
     Active Substance: HEPARIN SODIUM
     Dosage: UNK
     Dates: start: 20240524
  3. ASPIRIN DL-LYSINE [Suspect]
     Active Substance: ASPIRIN DL-LYSINE
     Dosage: UNK
     Dates: start: 20240524
  4. CANGRELOR [Suspect]
     Active Substance: CANGRELOR
     Dosage: UNK
     Dates: start: 20240524
  5. CEFEPIME [Suspect]
     Active Substance: CEFEPIME HYDROCHLORIDE
     Indication: Pneumonia aspiration
     Dosage: UNK
     Dates: start: 20240617, end: 20240621
  6. MEROPENEM [Suspect]
     Active Substance: MEROPENEM
     Indication: Pneumonia aspiration
     Dosage: UNK
     Dates: start: 20240616, end: 20240617
  7. PIPERACILLIN SODIUM\TAZOBACTAM SODIUM [Suspect]
     Active Substance: PIPERACILLIN SODIUM\TAZOBACTAM SODIUM
     Indication: Pneumonia aspiration
     Dosage: UNK
     Dates: start: 20240606, end: 20240610
  8. PIPERACILLIN SODIUM\TAZOBACTAM SODIUM [Suspect]
     Active Substance: PIPERACILLIN SODIUM\TAZOBACTAM SODIUM
     Dosage: UNK
     Dates: start: 20240614, end: 20240616
  9. AMOXICILLIN\CLAVULANATE POTASSIUM [Concomitant]
     Active Substance: AMOXICILLIN\CLAVULANATE POTASSIUM
     Indication: Pneumonia
     Dosage: UNK
     Dates: start: 20240524, end: 20240530
  10. AMLODIPINE [Concomitant]
     Active Substance: AMLODIPINE BESYLATE
     Dosage: 5 MG, PRN
     Route: 048
  11. PRONTOLAX [BISACODYL] [Concomitant]
     Dosage: 10 MG, PRN
     Route: 054
  12. DULCOLAX (BISACODYL) [Concomitant]
     Active Substance: BISACODYL
     Dosage: 10 MG, PRN
     Route: 054
  13. IMAZOL [CLOTRIMAZOLE] [Concomitant]
     Dosage: 1 DF, BID
     Route: 003
  14. DAPAGLIFLOZIN [Concomitant]
     Active Substance: DAPAGLIFLOZIN
     Dosage: 10 MG, QD (1 IN THE MORNING)
  15. ENOXAPARIN SODIUM [Concomitant]
     Active Substance: ENOXAPARIN SODIUM
     Dosage: 80 MG, QD (1 IN THE EVENING)
     Route: 058
  16. ENOXAPARIN SODIUM [Concomitant]
     Active Substance: ENOXAPARIN SODIUM
     Dosage: 100 MG, QD (1 IN THE MORNING)
     Route: 058
  17. ATROVENT [Concomitant]
     Active Substance: IPRATROPIUM BROMIDE
     Dosage: .25 MG/ 2 ML 1 DOSE BY INHALATION, QID
  18. ISOSOURCE PROTEIN [Concomitant]
     Dosage: 130 KCAL/ 100 ML TUBE FEED ENTERALLY VIA TUBE 2300 KCAL/DAY, QD
  19. JOULIE SOL [Concomitant]
     Dosage: 5 ML, TID (ENTERALLY VIA TUBE)
  20. POTASSIUM CHLORIDE [Concomitant]
     Active Substance: POTASSIUM CHLORIDE
     Dosage: 10 MMOL, BID (ENTERALLY VIA TUBE)
  21. MELATONIN [Concomitant]
     Active Substance: MELATONIN
     Dosage: 2 MG, QD (1 IN THE EVENING)
  22. MINALGINE [Concomitant]
     Dosage: 1 G, QID (1 IN THE MORNING, 1 AT LUNCHTIME, 1 IN THE EVENING, 1 AT NIGHTTIME/AS REQUIRED)
     Route: 042
     Dates: end: 20240623
  23. MINALGINE [Concomitant]
     Dosage: 500 MG, QID (ENTERALLY VIA TUBE 1 IN THE MORNING, 1 AT LUNCHTIME, 1 IN THE EVENING, 1 AT NIGHTTIME)
     Route: 040
  24. METOPROLOL SUCCINATE [Concomitant]
     Active Substance: METOPROLOL SUCCINATE
     Dosage: 100 MG, BID (ENTERALLY VIA TUBE)
  25. SODIUM PICOSULFATE [Concomitant]
     Active Substance: SODIUM PICOSULFATE
     Dosage: 5 MG, QD (ENTERALLY VIA TUBE 1 IN THE MORNING)
     Route: 050
  26. PANTOPRAZOLE SODIUM [Concomitant]
     Active Substance: PANTOPRAZOLE SODIUM
     Dosage: 40 MG, QD (1 IN THE MORNING)
     Route: 048
  27. QUETIAPINE FUMARATE [Concomitant]
     Active Substance: QUETIAPINE FUMARATE
     Dosage: 25 MG, PRN
     Route: 048
  28. QUETIAPINE FUMARATE [Concomitant]
     Active Substance: QUETIAPINE FUMARATE
     Dosage: 75 MG, QD (ENTERALLY VIA TUBE)
     Dates: start: 20240610
  29. ROSUVASTATIN CALCIUM [Concomitant]
     Active Substance: ROSUVASTATIN CALCIUM
     Dosage: 20 MG, QD (ENTERALLY VIA TUBE 1 IN THE MORNING)
  30. ENTRESTO [Concomitant]
     Active Substance: SACUBITRIL\VALSARTAN
     Dosage: UNK UNK, BID
     Route: 048
  31. SALBUTAMOL RATIOPHARM [Concomitant]
     Dosage: 1.25 MG, QID (BY INHALATION)
  32. ALDACTONE [Concomitant]
     Active Substance: SPIRONOLACTONE
     Dosage: 25 MG, QD (ENTERALLY VIA TUBE 1 IN THE MORNING)

REACTIONS (1)
  - Delirium [Recovering/Resolving]

NARRATIVE: CASE EVENT DATE: 20240601
